FAERS Safety Report 25790263 (Version 4)
Quarter: 2025Q3

REPORT INFORMATION
  Report Type: Spontaneous
  Country: US (occurrence: US)
  Receive Date: 20250911
  Receipt Date: 20250930
  Transmission Date: 20251020
  Serious: Yes (Hospitalization, Other)
  Sender: AUTOLUS THERAPEUTICS
  Company Number: US-Autolus Ltd-2184274

PATIENT
  Age: 61 Year
  Sex: Male

DRUGS (1)
  1. AUCATZYL [Suspect]
     Active Substance: OBECABTAGENE AUTOLEUCEL
     Indication: Acute lymphocytic leukaemia
     Dates: start: 20250804, end: 20250804

REACTIONS (5)
  - Neurotoxicity [Unknown]
  - Blood sodium abnormal [Unknown]
  - Immune effector cell-associated neurotoxicity syndrome [Unknown]
  - Chills [Unknown]
  - Pyrexia [Unknown]

NARRATIVE: CASE EVENT DATE: 20250828
